FAERS Safety Report 18515466 (Version 1)
Quarter: 2020Q4

REPORT INFORMATION
  Report Type: Spontaneous
  Country: US (occurrence: US)
  Receive Date: 20201118
  Receipt Date: 20201118
  Transmission Date: 20210114
  Serious: Yes (Hospitalization)
  Sender: FDA-Public Use
  Company Number: US-GW PHARMA-202011USGW03878

PATIENT

DRUGS (2)
  1. EPIDIOLEX [Suspect]
     Active Substance: CANNABIDIOL
     Indication: PRODUCT USED FOR UNKNOWN INDICATION
     Dosage: UNK, STARTING DOSE
     Route: 048
     Dates: end: 2020
  2. EPIDIOLEX [Suspect]
     Active Substance: CANNABIDIOL
     Dosage: UNK, TRIED TO TITRATE DOSE UP
     Route: 048
     Dates: start: 2020

REACTIONS (6)
  - Gait inability [Unknown]
  - Seizure [Unknown]
  - Adverse event [Unknown]
  - Loss of personal independence in daily activities [Unknown]
  - Blood creatine phosphokinase increased [Unknown]
  - Feeding disorder [Unknown]

NARRATIVE: CASE EVENT DATE: 2020
